FAERS Safety Report 4578711-7 (Version None)
Quarter: 2005Q1

REPORT INFORMATION
  Report Type: 
  Country: None (occurrence: None)
  Receive Date: 20050211
  Receipt Date: 20031218
  Transmission Date: 20050727
  Serious: Yes (Other)
  Sender: FDA-Public Use
  Company Number: US-GLAXOSMITHKLINE-A0493034A

PATIENT
  Sex: Female

DRUGS (7)
  1. PAXIL CR [Suspect]
     Indication: MAJOR DEPRESSION
     Route: 048
     Dates: start: 20030101
  2. PAXIL [Suspect]
     Route: 048
     Dates: start: 19971020
  3. HYDROXYZINE [Concomitant]
     Indication: DRUG USE FOR UNKNOWN INDICATION
  4. REMERON [Concomitant]
     Indication: DRUG USE FOR UNKNOWN INDICATION
  5. ZYPREXA [Concomitant]
     Indication: DRUG USE FOR UNKNOWN INDICATION
  6. PROZAC [Concomitant]
     Route: 048
     Dates: start: 20010101
  7. BUSPAR [Concomitant]
     Route: 048
     Dates: start: 20010103

REACTIONS (5)
  - CONVULSION [None]
  - DRUG WITHDRAWAL SYNDROME [None]
  - INTENTIONAL MISUSE [None]
  - OVERDOSE [None]
  - SUICIDE ATTEMPT [None]
